FAERS Safety Report 15618704 (Version 2)
Quarter: 2019Q2

REPORT INFORMATION
  Report Type: Report from Study
  Country: US (occurrence: US)
  Receive Date: 20181114
  Receipt Date: 20190531
  Transmission Date: 20190711
  Serious: Yes (Other)
  Sender: FDA-Public Use
  Company Number: US-ACTELION-A-NJ2018-177194

PATIENT
  Sex: Female

DRUGS (1)
  1. OPSUMIT [Suspect]
     Active Substance: MACITENTAN
     Indication: PULMONARY ARTERIAL HYPERTENSION
     Dosage: 10 MG, QD
     Route: 048
     Dates: start: 201802

REACTIONS (8)
  - Productive cough [Not Recovered/Not Resolved]
  - Cough [Recovering/Resolving]
  - Therapy non-responder [Unknown]
  - Pulmonary arterial pressure increased [Unknown]
  - Fluid retention [Recovered/Resolved]
  - Stress [Unknown]
  - Sinusitis [Unknown]
  - International normalised ratio increased [Unknown]
